FAERS Safety Report 4726501-4 (Version None)
Quarter: 2005Q3

REPORT INFORMATION
  Report Type: 
  Country: None (occurrence: None)
  Receive Date: 20050725
  Receipt Date: 20050506
  Transmission Date: 20060218
  Serious: No
  Sender: FDA-Public Use
  Company Number: USA050597558

PATIENT
  Age: 47 Year
  Sex: Female

DRUGS (4)
  1. STRATTERA [Suspect]
     Indication: ATTENTION DEFICIT/HYPERACTIVITY DISORDER
     Dosage: 80 MG/2 DAY
     Dates: start: 20040101
  2. HUMALOG [Concomitant]
  3. THYROID TAB [Concomitant]
  4. DYAZIDE [Concomitant]

REACTIONS (4)
  - ANOREXIA [None]
  - DRUG INEFFECTIVE [None]
  - THINKING ABNORMAL [None]
  - WEIGHT DECREASED [None]
